FAERS Safety Report 18753834 (Version 2)
Quarter: 2021Q1

REPORT INFORMATION
  Report Type: Spontaneous
  Country: FR (occurrence: FR)
  Receive Date: 20210119
  Receipt Date: 20210324
  Transmission Date: 20210419
  Serious: Yes (Other)
  Sender: FDA-Public Use
  Company Number: FR-AUROBINDO-AUR-APL-2021-001692

PATIENT
  Age: 56 Year
  Sex: Male

DRUGS (3)
  1. LINEZOLID. [Suspect]
     Active Substance: LINEZOLID
     Indication: PERITONITIS
     Dosage: 1200 MILLIGRAM
     Route: 048
     Dates: start: 20201207, end: 20201227
  2. AUGMENTIN [Suspect]
     Active Substance: AMOXICILLIN\CLAVULANATE POTASSIUM
     Indication: PERITONITIS
     Dosage: 6 DOSAGE FORM
     Route: 048
     Dates: start: 20201207
  3. FLUCONAZOLE. [Suspect]
     Active Substance: FLUCONAZOLE
     Indication: PERITONITIS
     Dosage: 200 MILLIGRAM
     Route: 048
     Dates: start: 20201207

REACTIONS (2)
  - Aplasia pure red cell [Recovered/Resolved]
  - Pancytopenia [Recovered/Resolved]

NARRATIVE: CASE EVENT DATE: 202012
